FAERS Safety Report 5628255-6 (Version None)
Quarter: 2008Q1

REPORT INFORMATION
  Report Type: 
  Country: None (occurrence: None)
  Receive Date: 20080215
  Receipt Date: 20080213
  Transmission Date: 20080703
  Serious: Yes (Life-Threatening)
  Sender: FDA-Public Use
  Company Number: JP-SANOFI-SYNTHELABO-F01200800242

PATIENT
  Sex: Male

DRUGS (13)
  1. DIOVAN [Concomitant]
     Dates: start: 20071128, end: 20071205
  2. DECADRON [Concomitant]
     Dates: start: 20071003, end: 20071128
  3. KYTRIL [Concomitant]
     Dates: start: 20071003, end: 20071212
  4. LIPITOR [Concomitant]
     Dates: start: 20070910, end: 20071205
  5. IRINOTECAN HCL [Suspect]
     Dosage: UNK
     Route: 065
  6. URINORM [Concomitant]
     Dates: start: 20070910, end: 20071205
  7. CALCIUM LEVOFOLINATE [Suspect]
     Route: 042
     Dates: start: 20071212, end: 20071212
  8. AMARYL [Concomitant]
     Dates: start: 20070910, end: 20071205
  9. FLUOROURACIL [Suspect]
     Route: 042
     Dates: start: 20071214, end: 20071214
  10. ENALAPRIL MALEATE [Concomitant]
     Dates: start: 20070910, end: 20071205
  11. BEVACIZUMAB [Suspect]
     Route: 042
     Dates: start: 20071212, end: 20071212
  12. ADALAT [Concomitant]
     Dates: start: 20070910, end: 20071205
  13. OXALIPLATIN [Suspect]
     Indication: RECTAL CANCER METASTATIC
     Route: 042
     Dates: start: 20071212, end: 20071212

REACTIONS (1)
  - ACUTE RESPIRATORY DISTRESS SYNDROME [None]
